FAERS Safety Report 5586727-7 (Version None)
Quarter: 2008Q1

REPORT INFORMATION
  Report Type: 
  Country: None (occurrence: None)
  Receive Date: 20080110
  Receipt Date: 20071018
  Transmission Date: 20080703
  Serious: Yes (Hospitalization)
  Sender: FDA-Public Use
  Company Number: US-BAYER-US-2007-039557

PATIENT
  Age: 30 Year
  Sex: Female
  Weight: 79 kg

DRUGS (1)
  1. YAZ [Suspect]
     Indication: ORAL CONTRACEPTION
     Route: 048
     Dates: start: 20070501, end: 20071001

REACTIONS (1)
  - DEEP VEIN THROMBOSIS [None]
